FAERS Safety Report 5086498-7 (Version None)
Quarter: 2006Q3

REPORT INFORMATION
  Report Type: 
  Country: None (occurrence: None)
  Receive Date: 20060818
  Receipt Date: 20060808
  Transmission Date: 20061208
  Serious: Yes (Hospitalization)
  Sender: FDA-Public Use
  Company Number: 2006-DE-04152GD

PATIENT
  Age: 82 Year
  Sex: Male

DRUGS (6)
  1. CODEINE (CODEINE) [Suspect]
     Indication: PAIN
     Dosage: UP TO 2400 MG
  2. PAROXETINE [Suspect]
     Dosage: 20 MG
  3. BROMAZEPAM (BROMAZEPAM) [Suspect]
     Dosage: 12 MG TWICE DAILY
  4. ZOPICLONE (ZOPICLONE) [Suspect]
     Dosage: 7.5 MG
  5. PREDNISOLONE [Concomitant]
  6. FENTANYL [Concomitant]

REACTIONS (9)
  - DELIRIUM [None]
  - DISORIENTATION [None]
  - HAEMODIALYSIS [None]
  - HYPOVOLAEMIA [None]
  - INFLUENZA LIKE ILLNESS [None]
  - PULMONARY OEDEMA [None]
  - RENAL FAILURE ACUTE [None]
  - RENAL TUBULAR NECROSIS [None]
  - RHABDOMYOLYSIS [None]
